FAERS Safety Report 5788322-3 (Version None)
Quarter: 2008Q2

REPORT INFORMATION
  Report Type: 
  Country: None (occurrence: None)
  Receive Date: 20080625
  Receipt Date: 20080616
  Transmission Date: 20081010
  Serious: Yes (Hospitalization)
  Sender: FDA-Public Use
  Company Number: US-PFIZER INC-2008046365

PATIENT
  Age: 86 Year
  Sex: Female

DRUGS (9)
  1. DETROL [Suspect]
     Route: 048
  2. HYDROCHLOROTHIAZIDE [Concomitant]
  3. LISINOPRIL [Concomitant]
     Route: 048
  4. MIRTAZAPINE [Concomitant]
     Route: 048
  5. OMEPRAZOLE [Concomitant]
     Route: 048
  6. DOXAZOSIN MESYLATE [Concomitant]
     Route: 048
  7. VALSARTAN [Concomitant]
     Route: 048
  8. HYDROCODONE [Concomitant]
     Route: 048
  9. ACETAMINOPHEN [Concomitant]
     Route: 048

REACTIONS (2)
  - HYPONATRAEMIA [None]
  - UNRESPONSIVE TO STIMULI [None]
